FAERS Safety Report 7403099-3 (Version None)
Quarter: 2011Q2

REPORT INFORMATION
  Report Type: 
  Country: None (occurrence: None)
  Receive Date: 20110408
  Receipt Date: 20110330
  Transmission Date: 20111010
  Serious: Yes (Disabling)
  Sender: FDA-Public Use
  Company Number: GB-SANOFI-AVENTIS-2011SA017710

PATIENT
  Age: 76 Year
  Sex: Male

DRUGS (12)
  1. DOCETAXEL [Suspect]
     Indication: PROSTATE CANCER
     Route: 042
     Dates: start: 20110126, end: 20110126
  2. ADALAT [Concomitant]
     Route: 048
     Dates: start: 20030101
  3. CIPROFLOXACIN [Concomitant]
     Indication: PROPHYLAXIS
  4. BISOPROLOL FUMARATE [Concomitant]
     Route: 048
     Dates: start: 20030101
  5. PLAVIX [Concomitant]
     Route: 048
     Dates: start: 20030101
  6. ACETAMINOPHEN AND CODEINE PHOSPHATE [Concomitant]
     Route: 048
     Dates: start: 20100701
  7. SIMVASTATIN [Concomitant]
     Route: 048
     Dates: start: 20101217
  8. GABAPENTIN [Concomitant]
     Route: 048
     Dates: start: 20030101
  9. DOCETAXEL [Suspect]
     Route: 042
     Dates: start: 20110310, end: 20110310
  10. HORMONE ANTAGONISTS AND RELATED AGENTS [Suspect]
     Indication: PROSTATE CANCER
     Route: 058
     Dates: start: 20101111, end: 20110202
  11. TAMSULOSIN HYDROCHLORIDE [Concomitant]
     Route: 048
     Dates: start: 20100701
  12. DUTASTERIDE [Concomitant]
     Route: 048
     Dates: start: 20100101

REACTIONS (1)
  - BLINDNESS TRANSIENT [None]
